FAERS Safety Report 8393900 (Version 2)
Quarter: 2015Q1

REPORT INFORMATION
  Report Type: Report from Study
  Country: US (occurrence: US)
  Receive Date: 20120207
  Receipt Date: 20150303
  Transmission Date: 20150721
  Serious: Yes (Death)
  Sender: FDA-Public Use
  Company Number: US-ROCHE-1036632

PATIENT
  Sex: Female

DRUGS (7)
  1. DECADRON [Concomitant]
     Active Substance: DEXAMETHASONE
     Route: 065
  2. ZOFRAN [Concomitant]
     Active Substance: ONDANSETRON HYDROCHLORIDE
     Route: 065
  3. TEMODAR [Concomitant]
     Active Substance: TEMOZOLOMIDE
     Dosage: DAILY FOR 5 DAYS, REPEATED 28 DAYS
     Route: 065
  4. ATROPINE [Concomitant]
     Active Substance: ATROPINE
     Route: 042
  5. IRINOTECAN [Concomitant]
     Active Substance: IRINOTECAN
     Route: 065
  6. AVASTIN [Suspect]
     Active Substance: BEVACIZUMAB
     Indication: BRAIN NEOPLASM MALIGNANT
     Route: 042
     Dates: start: 20060731
  7. KEPPRA [Concomitant]
     Active Substance: LEVETIRACETAM
     Dosage: 1000 MG IN AM AND 1500 MG IN PM
     Route: 065

REACTIONS (8)
  - Sneezing [Unknown]
  - Nasal pruritus [Unknown]
  - Confusional state [Unknown]
  - Off label use [Unknown]
  - Contusion [Unknown]
  - Somnolence [Unknown]
  - Death [Fatal]
  - Aphasia [Unknown]
